FAERS Safety Report 5847164-0 (Version None)
Quarter: 2008Q3

REPORT INFORMATION
  Report Type: 
  Country: None (occurrence: None)
  Receive Date: 20080815
  Receipt Date: 20080808
  Transmission Date: 20090109
  Serious: Yes (Hospitalization)
  Sender: FDA-Public Use
  Company Number: PHHY2008DK17563

PATIENT
  Sex: Female

DRUGS (17)
  1. RITALIN [Suspect]
     Dosage: 10 MG/DAY
     Dates: start: 20070101
  2. RITALIN [Suspect]
     Dosage: 15 MG/DAY
  3. RITALIN [Suspect]
     Dosage: 20 MG/DAY
  4. RITALIN [Suspect]
     Dosage: 35 MG/DAY
     Dates: start: 20070201
  5. RITALIN [Suspect]
     Dosage: 55 MG/DAY
  6. RITALIN [Suspect]
     Dosage: 20 MG, QID
  7. RITALIN [Suspect]
     Dosage: 5 MG, QD
     Dates: start: 20080101
  8. RITALIN [Suspect]
     Dosage: 15 MG/DAY
     Dates: start: 20080201
  9. RITALIN [Suspect]
     Dosage: 20 MG/DAILY
     Dates: start: 20080701
  10. STRATTERA [Suspect]
     Dosage: 60 MG AM
     Dates: start: 20070301
  11. STRATTERA [Suspect]
     Dosage: 40 MG, BID
     Dates: start: 20070401
  12. STRATTERA [Suspect]
     Dosage: 60 MG/DAY
     Dates: start: 20080201
  13. STRATTERA [Suspect]
     Dosage: 40 MG/DAY
     Dates: start: 20080301
  14. STRATTERA [Suspect]
     Dosage: 40 MG/DAY
     Dates: start: 20080701
  15. EQUASYM [Suspect]
  16. MELATONIN [Concomitant]
     Indication: SLEEP DISORDER
  17. DESOGESTREL AND ETHINYL ESTRADIOL [Concomitant]

REACTIONS (8)
  - BLOOD PRESSURE INCREASED [None]
  - DIZZINESS [None]
  - FATIGUE [None]
  - HEADACHE [None]
  - HEART RATE INCREASED [None]
  - SLEEP DISORDER [None]
  - THROMBOSIS [None]
  - WEIGHT DECREASED [None]
